FAERS Safety Report 10555042 (Version 1)
Quarter: 2014Q4

REPORT INFORMATION
  Report Type: Spontaneous
  Country: CN (occurrence: CN)
  Receive Date: 20141030
  Receipt Date: 20141030
  Transmission Date: 20150529
  Serious: Yes (Hospitalization, Other)
  Sender: FDA-Public Use
  Company Number: CN-JNJFOC-20141014255

PATIENT
  Age: 3 Month
  Sex: Female
  Weight: 6 kg

DRUGS (5)
  1. CHINESE MEDICATION [Concomitant]
     Active Substance: UNSPECIFIED INGREDIENT
     Indication: BRONCHIOLITIS
     Route: 048
     Dates: start: 20140323, end: 20140324
  2. INFANTS TYLENOL [Suspect]
     Active Substance: ACETAMINOPHEN
     Indication: PYREXIA
     Route: 048
     Dates: start: 20140321, end: 20140324
  3. CHINESE MEDICATION [Concomitant]
     Active Substance: UNSPECIFIED INGREDIENT
     Indication: BRONCHIOLITIS
     Route: 048
     Dates: start: 20140323, end: 20140324
  4. CEFUROXIME AXETIL. [Suspect]
     Active Substance: CEFUROXIME AXETIL
     Indication: BRONCHIOLITIS
     Route: 048
     Dates: start: 20140323, end: 20140324
  5. PEDIATRIC PARACETAMOL/ARTIFICIAL COW-BEZOAR/CHLORPHENAMINE MALEATE [Suspect]
     Active Substance: ACETAMINOPHEN\CHLORPHENIRAMINE MALEATE\HERBALS
     Indication: BRONCHIOLITIS
     Route: 048
     Dates: start: 20140320, end: 20140323

REACTIONS (6)
  - Respiratory rate increased [None]
  - Liver function test abnormal [Recovering/Resolving]
  - Heart rate increased [None]
  - Hepatic function abnormal [None]
  - Aspartate aminotransferase increased [None]
  - Alanine aminotransferase increased [None]

NARRATIVE: CASE EVENT DATE: 20140324
